FAERS Safety Report 7970592-4 (Version None)
Quarter: 2011Q4

REPORT INFORMATION
  Report Type: 
  Country: None (occurrence: None)
  Receive Date: 20111212
  Receipt Date: 20111206
  Transmission Date: 20120403
  Serious: Yes (Other)
  Sender: FDA-Public Use
  Company Number: US-SANOFI-AVENTIS-2011SA080292

PATIENT
  Age: 58 Year
  Sex: Female

DRUGS (1)
  1. ZOLPIDEM TARTRATE [Suspect]
     Indication: SLEEP DISORDER
     Route: 048

REACTIONS (7)
  - HAEMORRHAGE [None]
  - SOMNAMBULISM [None]
  - FALL [None]
  - HAIR TEXTURE ABNORMAL [None]
  - FATIGUE [None]
  - LACERATION [None]
  - CONTUSION [None]
